FAERS Safety Report 7734153-4 (Version None)
Quarter: 2011Q3

REPORT INFORMATION
  Report Type: 
  Country: None (occurrence: None)
  Receive Date: 20110901
  Receipt Date: 20110822
  Transmission Date: 20111222
  Serious: Yes (Hospitalization)
  Sender: FDA-Public Use
  Company Number: 2011S1000993

PATIENT
  Age: 58 Year
  Sex: Female
  Weight: 71.5 kg

DRUGS (9)
  1. PREMARIN [Concomitant]
  2. ZOLPIDEM [Concomitant]
  3. ADVAIR DISKUS 100/50 [Concomitant]
  4. LIVALO [Suspect]
     Indication: HYPERLIPIDAEMIA
     Dosage: 2 MG; 1X; PO
     Route: 048
     Dates: start: 20110603, end: 20110706
  5. LASIX [Concomitant]
  6. UNISIA [Concomitant]
  7. NIKORANMART [Concomitant]
  8. CLARITHROMYCIN [Concomitant]
  9. PREDNISOLONE [Concomitant]

REACTIONS (5)
  - MUSCULAR WEAKNESS [None]
  - MYALGIA [None]
  - MALAISE [None]
  - PAIN IN EXTREMITY [None]
  - RHABDOMYOLYSIS [None]
